FAERS Safety Report 16118962 (Version 2)
Quarter: 2019Q2

REPORT INFORMATION
  Report Type: Spontaneous
  Country: US (occurrence: US)
  Receive Date: 20190326
  Receipt Date: 20190410
  Transmission Date: 20190711
  Serious: Yes (Death, Other)
  Sender: FDA-Public Use
  Company Number: US-PFIZER INC-2019127605

PATIENT
  Age: 56 Year
  Sex: Male

DRUGS (2)
  1. SUTENT [Suspect]
     Active Substance: SUNITINIB MALATE
     Dosage: 37.5 MG, DAILY
     Route: 048
  2. SUTENT [Suspect]
     Active Substance: SUNITINIB MALATE
     Dosage: 37.5 MG, EVERY OTHER DAY
     Route: 048

REACTIONS (8)
  - Eating disorder [Unknown]
  - Neoplasm progression [Fatal]
  - Confusional state [Unknown]
  - Asthenia [Unknown]
  - Abdominal pain upper [Unknown]
  - Pulmonary oedema [Unknown]
  - Abdominal discomfort [Unknown]
  - Viral infection [Unknown]

NARRATIVE: CASE EVENT DATE: 20190401
